FAERS Safety Report 6805446-X (Version None)
Quarter: 2010Q2

REPORT INFORMATION
  Report Type: 
  Country: None (occurrence: None)
  Receive Date: 20100628
  Receipt Date: 20071201
  Transmission Date: 20101027
  Serious: No
  Sender: FDA-Public Use
  Company Number: US-PFIZER INC-2007089060

PATIENT
  Sex: Female
  Weight: 11.6 kg

DRUGS (1)
  1. GENOTROPIN [Suspect]
     Indication: BODY HEIGHT BELOW NORMAL
     Dosage: 0.6MG QD EVERYDAY TDD:0.6MG
     Dates: start: 20070907, end: 20071022

REACTIONS (2)
  - SKIN EXFOLIATION [None]
  - URTICARIA [None]
